FAERS Safety Report 5039688-3 (Version None)
Quarter: 2006Q2

REPORT INFORMATION
  Report Type: 
  Country: None (occurrence: None)
  Receive Date: 20060601
  Receipt Date: 20060108
  Transmission Date: 20061013
  Serious: No
  Sender: FDA-Public Use
  Company Number: 2006PV006752

PATIENT
  Age: 52 Year
  Sex: Female
  Weight: 97.5234 kg

DRUGS (4)
  1. BYETTA [Suspect]
     Indication: DIABETES MELLITUS NON-INSULIN-DEPENDENT
     Dosage: 5 MCG;BID;SC
     Route: 058
     Dates: start: 20051120
  2. ALKA SELTZER PLUS [Suspect]
     Indication: DRUG USE FOR UNKNOWN INDICATION
     Dosage: HS
     Dates: end: 20060101
  3. METFORMIN [Concomitant]
  4. CRESTOR [Concomitant]

REACTIONS (6)
  - COUGH [None]
  - FATIGUE [None]
  - NASOPHARYNGITIS [None]
  - PHARYNGOLARYNGEAL PAIN [None]
  - PYREXIA [None]
  - WEIGHT DECREASED [None]
